FAERS Safety Report 18547253 (Version 1)
Quarter: 2020Q4

REPORT INFORMATION
  Report Type: Spontaneous
  Country: SG (occurrence: SG)
  Receive Date: 20201126
  Receipt Date: 20201126
  Transmission Date: 20210114
  Serious: Yes (Other)
  Sender: FDA-Public Use
  Company Number: SG-B.I. PHARMACEUTICALS,INC./RIDGEFIELD-2020-BI-063118

PATIENT
  Sex: Female

DRUGS (1)
  1. TRAJENTA [Suspect]
     Active Substance: LINAGLIPTIN
     Indication: PRODUCT USED FOR UNKNOWN INDICATION
     Route: 065

REACTIONS (2)
  - Cerebrovascular accident [Recovering/Resolving]
  - Abdominal discomfort [Unknown]

NARRATIVE: CASE EVENT DATE: 2020
